FAERS Safety Report 10040299 (Version 2)
Quarter: 2014Q2

REPORT INFORMATION
  Report Type: Spontaneous
  Country: FR (occurrence: FR)
  Receive Date: 20140327
  Receipt Date: 20140501
  Transmission Date: 20141212
  Serious: Yes (Hospitalization, Other)
  Sender: FDA-Public Use
  Company Number: FR-ROCHE-1367471

PATIENT
  Sex: Female

DRUGS (5)
  1. AVASTIN [Suspect]
     Indication: RENAL CANCER METASTATIC
     Route: 065
     Dates: start: 201004
  2. AVASTIN [Suspect]
     Indication: RENAL CANCER METASTATIC
     Route: 065
     Dates: start: 201209
  3. AVASTIN [Suspect]
     Route: 042
     Dates: start: 20130823
  4. SUTENT [Concomitant]
     Indication: RENAL CANCER METASTATIC
     Route: 048
     Dates: start: 20130902, end: 20130930
  5. SUTENT [Concomitant]
     Indication: RENAL CANCER METASTATIC

REACTIONS (6)
  - Pneumatosis [Recovered/Resolved]
  - Spinal cord compression [Unknown]
  - Confusional state [Unknown]
  - Pelvic fracture [Unknown]
  - Nephritic syndrome [Recovered/Resolved]
  - Disease progression [Unknown]
